FAERS Safety Report 19802728 (Version 1)
Quarter: 2021Q3

REPORT INFORMATION
  Report Type: Other
  Country: DE (occurrence: DE)
  Receive Date: 20210908
  Receipt Date: 20210908
  Transmission Date: 20211014
  Serious: Yes (Hospitalization, Other)
  Sender: FDA-Public Use
  Company Number: DE-MACLEODS PHARMA UK LTD-MAC2021032593

PATIENT

DRUGS (2)
  1. IRBESARTAN/HYDROCHLOROTHIAZIDE 300/12.5 MG TABLET [Suspect]
     Active Substance: HYDROCHLOROTHIAZIDE\IRBESARTAN
     Indication: PRODUCT USED FOR UNKNOWN INDICATION
     Dosage: 1 DOSAGE FORM, QD (12.5/300 MG, 1?0?0?0, TABLETTEN)
     Route: 048
  2. METFORMIN [Suspect]
     Active Substance: METFORMIN HYDROCHLORIDE
     Indication: PRODUCT USED FOR UNKNOWN INDICATION
     Dosage: 1000 MILLIGRAM, BID (EVERY 12 HR)
     Route: 048

REACTIONS (3)
  - Pain [Unknown]
  - Haematuria [Unknown]
  - Acute kidney injury [Unknown]
